FAERS Safety Report 9613728 (Version 1)
Quarter: 2013Q4

REPORT INFORMATION
  Report Type: Spontaneous
  Country: IT (occurrence: IT)
  Receive Date: 20131010
  Receipt Date: 20131010
  Transmission Date: 20140711
  Serious: Yes (Other)
  Sender: FDA-Public Use
  Company Number: IT-UCBSA-099421

PATIENT
  Sex: Male

DRUGS (2)
  1. NEUPRO [Suspect]
     Route: 062
  2. AZILECT [Concomitant]

REACTIONS (1)
  - Cardiomyopathy [Unknown]
